FAERS Safety Report 7002352-5 (Version None)
Quarter: 2010Q3

REPORT INFORMATION
  Report Type: 
  Country: None (occurrence: None)
  Receive Date: 20100920
  Receipt Date: 20100115
  Transmission Date: 20110219
  Serious: Yes (Other)
  Sender: FDA-Public Use
  Company Number: US-ASTRAZENECA-2009SE19298

PATIENT
  Age: 53 Year
  Sex: Female
  Weight: 93 kg

DRUGS (12)
  1. SEROQUEL [Suspect]
     Indication: BIPOLAR DISORDER
     Route: 048
     Dates: start: 20040101, end: 20050101
  2. SEROQUEL [Suspect]
     Route: 048
     Dates: start: 20040205
  3. ABILIFY [Concomitant]
     Dates: start: 20080101
  4. GEODON [Concomitant]
     Dates: start: 20050101
  5. HALDOL [Concomitant]
     Dates: start: 20090101
  6. THORAZINE [Concomitant]
     Dates: start: 20000101
  7. ZYPREXA [Concomitant]
     Dates: start: 20040101, end: 20080101
  8. DEPAKOTE ER [Concomitant]
     Dates: start: 20041118
  9. METOPROLOL [Concomitant]
     Dates: start: 20050126
  10. NITROGLYCERIN [Concomitant]
     Dates: start: 20050126
  11. LORATADINE [Concomitant]
     Dates: start: 20050222
  12. PRAVASTATIN SODIUM [Concomitant]
     Dates: start: 20060802

REACTIONS (8)
  - BLOOD CHOLESTEROL INCREASED [None]
  - DRUG INEFFECTIVE [None]
  - HYPERGLYCAEMIA [None]
  - HYPERLIPIDAEMIA [None]
  - OBESITY [None]
  - TARDIVE DYSKINESIA [None]
  - TYPE 2 DIABETES MELLITUS [None]
  - WEIGHT INCREASED [None]
